FAERS Safety Report 7656632-0 (Version None)
Quarter: 2011Q3

REPORT INFORMATION
  Report Type: 
  Country: None (occurrence: None)
  Receive Date: 20110801
  Receipt Date: 20110715
  Transmission Date: 20111222
  Serious: Yes (Other)
  Sender: FDA-Public Use
  Company Number: AUR-APL-2011-04287

PATIENT
  Age: 70 Year
  Sex: Male

DRUGS (3)
  1. METFORMIN HCL [Suspect]
     Indication: TYPE 2 DIABETES MELLITUS
     Dosage: 1500 MG (500 MG, 3 IN 1 D)
  2. ALFUZOSIN (ALFUZOSIN) [Concomitant]
  3. SIMVASTATIN [Concomitant]

REACTIONS (4)
  - ORTHOSTATIC HYPOTENSION [None]
  - DIZZINESS [None]
  - TREMOR [None]
  - PROSTATOMEGALY [None]
